FAERS Safety Report 9233590 (Version 1)
Quarter: 2013Q1

REPORT INFORMATION
  Report Type: Spontaneous
  Country: US (occurrence: None)
  Receive Date: 20121031
  Receipt Date: 20121031
  Transmission Date: 20140127
  Serious: No
  Sender: FDA-Public Use
  Company Number: PHEH2012US014516

PATIENT
  Age: 31 Year
  Sex: Female

DRUGS (1)
  1. GILENYA (FTY) CAPSULE, 0.5MG [Suspect]
     Indication: MULTIPLE SCLEROSIS
     Route: 048
     Dates: start: 20120605

REACTIONS (6)
  - Rhinorrhoea [None]
  - Malaise [None]
  - Influenza like illness [None]
  - Cough [None]
  - Lower respiratory tract infection [None]
  - Pyrexia [None]
